FAERS Safety Report 11616581 (Version 1)
Quarter: 2015Q4

REPORT INFORMATION
  Report Type: Spontaneous
  Country: US (occurrence: US)
  Receive Date: 20151009
  Receipt Date: 20151009
  Transmission Date: 20160304
  Serious: No
  Sender: FDA-Public Use
  Company Number: US-TORRENT-00000876

PATIENT
  Sex: Male

DRUGS (1)
  1. ZOLPIDEM TARTRATE. [Suspect]
     Active Substance: ZOLPIDEM TARTRATE
     Indication: INSOMNIA
     Dosage: 1 TABLET NIGHTLY 9:30 PM?ZOLPIDEM TARTRATE FOR 6 TO 9 MONTHS
     Dates: start: 2014

REACTIONS (2)
  - Terminal insomnia [Unknown]
  - Drug tolerance [Unknown]
